FAERS Safety Report 5126063-6 (Version None)
Quarter: 2006Q4

REPORT INFORMATION
  Report Type: 
  Country: None (occurrence: None)
  Receive Date: 20061012
  Receipt Date: 20061003
  Transmission Date: 20070319
  Serious: Yes (Life-Threatening)
  Sender: FDA-Public Use
  Company Number: RU-ROCHE-465659

PATIENT
  Age: 57 Year
  Sex: Male

DRUGS (3)
  1. ROFERON-A [Suspect]
     Dosage: PATIENT HAS TAKEN ONE COURSE OF DRUG.
     Route: 065
     Dates: start: 20060915, end: 20060915
  2. DILATREND [Concomitant]
  3. MONOPRIL [Concomitant]

REACTIONS (1)
  - C-REACTIVE PROTEIN INCREASED [None]
